FAERS Safety Report 6006926-X (Version None)
Quarter: 2008Q4

REPORT INFORMATION
  Report Type: 
  Country: None (occurrence: None)
  Receive Date: 20081217
  Receipt Date: 20081205
  Transmission Date: 20090506
  Serious: Yes (Other)
  Sender: FDA-Public Use
  Company Number: JP-SANOFI-SYNTHELABO-A01200816052

PATIENT
  Age: 70 Year
  Sex: Female

DRUGS (5)
  1. AVASTIN [Suspect]
     Indication: LARGE INTESTINE CARCINOMA
     Route: 042
     Dates: start: 20080402, end: 20080430
  2. ISOVORIN [Suspect]
     Indication: LARGE INTESTINE CARCINOMA
     Route: 042
     Dates: start: 20080305, end: 20080430
  3. ELPLAT [Suspect]
     Indication: LARGE INTESTINE CARCINOMA
     Route: 042
     Dates: start: 20080305, end: 20080430
  4. FLUOROURACIL [Suspect]
     Indication: LARGE INTESTINE CARCINOMA
     Route: 040
     Dates: start: 20080305, end: 20080430
  5. FLUOROURACIL [Suspect]
     Route: 041
     Dates: start: 20080305, end: 20080430

REACTIONS (1)
  - PERITONITIS [None]
